FAERS Safety Report 16473763 (Version 1)
Quarter: 2019Q2

REPORT INFORMATION
  Report Type: Spontaneous
  Country: US (occurrence: US)
  Receive Date: 20190515
  Receipt Date: 20190515
  Transmission Date: 20190711
  Serious: No
  Sender: FDA-Public Use
  Company Number: None

PATIENT
  Age: 79 Year
  Sex: Female
  Weight: 53.52 kg

DRUGS (1)
  1. CARVEDILOL 3.125MG [Suspect]
     Active Substance: CARVEDILOL

REACTIONS (4)
  - Erythema [None]
  - Mass [None]
  - Hypersensitivity [None]
  - Burning sensation [None]

NARRATIVE: CASE EVENT DATE: 201810
